FAERS Safety Report 4321178-4 (Version None)
Quarter: 2004Q1

REPORT INFORMATION
  Report Type: 
  Country: None (occurrence: None)
  Receive Date: 20040322
  Receipt Date: 20020516
  Transmission Date: 20041129
  Serious: Yes (Other)
  Sender: FDA-Public Use
  Company Number: WAES 0205USA02117

PATIENT
  Age: 41 Year
  Sex: Male
  Weight: 76 kg

DRUGS (5)
  1. ALLOPURINOL [Concomitant]
     Indication: GOUT
  2. ADVIL [Concomitant]
     Indication: HEADACHE
  3. INDOCIN [Concomitant]
     Indication: GOUT
     Route: 048
  4. NORITATE [Concomitant]
     Indication: ROSACEA
  5. VIOXX [Suspect]
     Indication: GOUT
     Route: 048
     Dates: end: 20010905

REACTIONS (26)
  - ANGINA PECTORIS [None]
  - ANXIETY [None]
  - ARRHYTHMIA [None]
  - ARTHRALGIA [None]
  - ASTHENIA [None]
  - BACK PAIN [None]
  - CHEST PAIN [None]
  - DERMATITIS [None]
  - DRUG INEFFECTIVE [None]
  - DYSPNOEA [None]
  - EMOTIONAL DISTRESS [None]
  - EYE PAIN [None]
  - FATIGUE [None]
  - HEADACHE [None]
  - HYPOAESTHESIA [None]
  - HYPOTENSION [None]
  - INJURY [None]
  - INTERCOSTAL NEURALGIA [None]
  - LOOSE STOOLS [None]
  - MENTAL DISORDER [None]
  - NAUSEA [None]
  - PAIN IN EXTREMITY [None]
  - PARAESTHESIA [None]
  - ROSACEA [None]
  - SILENT MYOCARDIAL INFARCTION [None]
  - SINUSITIS [None]
